FAERS Safety Report 18851489 (Version 1)
Quarter: 2021Q1

REPORT INFORMATION
  Report Type: Spontaneous
  Country: US (occurrence: US)
  Receive Date: 20210204
  Receipt Date: 20210204
  Transmission Date: 20210420
  Serious: No
  Sender: FDA-Public Use
  Company Number: None

PATIENT
  Sex: Female

DRUGS (2)
  1. SILDENAFIL 20MG [Suspect]
     Active Substance: SILDENAFIL
     Route: 048
  2. LETAIRIS [Suspect]
     Active Substance: AMBRISENTAN
     Route: 048

REACTIONS (7)
  - Lymphadenopathy [None]
  - Ear disorder [None]
  - Erythema [None]
  - Drug ineffective [None]
  - Fungal infection [None]
  - Swollen tongue [None]
  - Unevaluable event [None]
